FAERS Safety Report 21993424 (Version 1)
Quarter: 2023Q1

REPORT INFORMATION
  Report Type: Spontaneous
  Country: US (occurrence: US)
  Receive Date: 20230215
  Receipt Date: 20230215
  Transmission Date: 20230417
  Serious: No
  Sender: FDA-Public Use
  Company Number: US-TEVA-2023-US-2852425

PATIENT

DRUGS (1)
  1. METHYLPHENIDATE HYDROCHLORIDE [Suspect]
     Active Substance: METHYLPHENIDATE HYDROCHLORIDE
     Indication: Attention deficit hyperactivity disorder
     Dosage: 54 MG
     Route: 065

REACTIONS (5)
  - Somnolence [Unknown]
  - Disturbance in attention [Unknown]
  - Therapeutic response shortened [Unknown]
  - Muscle twitching [Recovered/Resolved]
  - Drug ineffective [Unknown]
